FAERS Safety Report 25629875 (Version 1)
Quarter: 2025Q3

REPORT INFORMATION
  Report Type: Spontaneous
  Country: US (occurrence: US)
  Receive Date: 20250731
  Receipt Date: 20250731
  Transmission Date: 20251021
  Serious: No
  Sender: TAKEDA
  Company Number: US-TAKEDA-2025TUS064900

PATIENT
  Sex: Male
  Weight: 74 kg

DRUGS (2)
  1. ENTYVIO [Suspect]
     Active Substance: VEDOLIZUMAB
     Indication: Crohn^s disease
  2. PENTASA [Concomitant]
     Active Substance: MESALAMINE

REACTIONS (4)
  - Drug level decreased [Unknown]
  - Faeces soft [Unknown]
  - Pain [Unknown]
  - Frequent bowel movements [Unknown]
